FAERS Safety Report 24433608 (Version 3)
Quarter: 2024Q4

REPORT INFORMATION
  Report Type: Spontaneous
  Country: US (occurrence: US)
  Receive Date: 20241014
  Receipt Date: 20241209
  Transmission Date: 20250114
  Serious: Yes (Other)
  Sender: PFIZER
  Company Number: US-PFIZER INC-202400273003

PATIENT
  Age: 69 Year
  Sex: Female
  Weight: 68.04 kg

DRUGS (5)
  1. SOMATROPIN [Suspect]
     Active Substance: SOMATROPIN
     Indication: Growth hormone deficiency
     Dosage: 0.2 MG
  2. SOMATROPIN [Suspect]
     Active Substance: SOMATROPIN
     Dosage: 0.2MG DAILY
  3. ZOLPIDEM [Concomitant]
     Active Substance: ZOLPIDEM TARTRATE
     Indication: Sleep disorder
     Dosage: 10MG AT BEDTIME
  4. CLONAZEPAM [Concomitant]
     Active Substance: CLONAZEPAM
     Indication: Sleep disorder
     Dosage: 2MG AT BEDTIME
  5. MIRTAZAPINE [Concomitant]
     Active Substance: MIRTAZAPINE
     Indication: Sleep disorder
     Dosage: 30MG AT BEDTIME

REACTIONS (4)
  - Arthralgia [Recovered/Resolved]
  - Myalgia [Recovered/Resolved]
  - Pain [Unknown]
  - Eye pain [Unknown]
